FAERS Safety Report 4675177-3 (Version None)
Quarter: 2005Q2

REPORT INFORMATION
  Report Type: 
  Country: None (occurrence: None)
  Receive Date: 20050526
  Receipt Date: 20050113
  Transmission Date: 20051028
  Serious: Yes (Other)
  Sender: FDA-Public Use
  Company Number: 2005029735

PATIENT
  Age: 30 Year
  Sex: Female
  Weight: 78.0187 kg

DRUGS (2)
  1. DETROL LA [Suspect]
     Indication: HYPERTONIC BLADDER
     Dosage: 4 MG (4 MG, 1 IN 1 D),
     Dates: start: 20010101
  2. ALBUTEROL [Concomitant]

REACTIONS (3)
  - BLADDER DISORDER [None]
  - DISEASE RECURRENCE [None]
  - HYPERTONIC BLADDER [None]
